FAERS Safety Report 4277796-5 (Version None)
Quarter: 2004Q1

REPORT INFORMATION
  Report Type: 
  Country: None (occurrence: None)
  Receive Date: 20040121
  Receipt Date: 20030814
  Transmission Date: 20041129
  Serious: Yes (Other)
  Sender: FDA-Public Use
  Company Number: 2003-08-1240

PATIENT
  Age: 21 Year
  Sex: Female

DRUGS (1)
  1. SUBUTEX [Suspect]
     Dosage: 4 MG

REACTIONS (2)
  - ARTHRALGIA [None]
  - HYPOAESTHESIA [None]
